FAERS Safety Report 8211554-1 (Version None)
Quarter: 2012Q1

REPORT INFORMATION
  Report Type: 
  Country: None (occurrence: None)
  Receive Date: 20120315
  Receipt Date: 20120307
  Transmission Date: 20120608
  Serious: Yes (Other)
  Sender: FDA-Public Use
  Company Number: US-UCBSA-053095

PATIENT
  Age: 29 Year
  Sex: Female
  Weight: 108.8 kg

DRUGS (6)
  1. VITAMIN B COMPLEX CAP [Concomitant]
  2. PRENATAL [Concomitant]
  3. CIMZIA [Suspect]
     Indication: CROHN'S DISEASE
     Route: 065
  4. ZOLOFT [Concomitant]
     Dosage: DAILY DOSE: 100 MG
  5. INFLIXIMAB [Concomitant]
     Indication: CROHN'S DISEASE
     Route: 067
     Dates: end: 20111229
  6. CLOMID [Concomitant]

REACTIONS (3)
  - PREGNANCY [None]
  - EXPOSURE VIA SEMEN [None]
  - ABORTION SPONTANEOUS [None]
